FAERS Safety Report 9015266 (Version 1)
Quarter: 2013Q1

REPORT INFORMATION
  Report Type: Spontaneous
  Country: US (occurrence: None)
  Receive Date: 20130103
  Receipt Date: 20130103
  Transmission Date: 20140127
  Serious: Yes (Other)
  Sender: FDA-Public Use
  Company Number: US-SEPTODONT-201200874

PATIENT
  Sex: Female

DRUGS (1)
  1. SEPTOCAINE/EPINEPHRINE [Suspect]
     Indication: LOCAL ANAESTHESIA
     Route: 004
     Dates: start: 20101207

REACTIONS (11)
  - Nerve injury [None]
  - Paraesthesia oral [None]
  - Paraesthesia [None]
  - Sensory loss [None]
  - Hypoaesthesia [None]
  - Paraesthesia [None]
  - Pain [None]
  - Pain [None]
  - Burning sensation [None]
  - Ageusia [None]
  - Dysgeusia [None]
